FAERS Safety Report 17298447 (Version 1)
Quarter: 2020Q1

REPORT INFORMATION
  Report Type: Spontaneous
  Country: US (occurrence: US)
  Receive Date: 20200122
  Receipt Date: 20200122
  Transmission Date: 20200409
  Serious: Yes (Life-Threatening, Hospitalization, Other)
  Sender: FDA-Public Use
  Company Number: US-HIKMA PHARMACEUTICALS USA INC.-US-H14001-20-50430

PATIENT
  Age: 47 Year
  Sex: Male

DRUGS (1)
  1. HEPARIN [Suspect]
     Active Substance: HEPARIN SODIUM
     Indication: ANTICOAGULANT THERAPY
     Dosage: ()
     Route: 065

REACTIONS (4)
  - Respiratory distress [Recovered/Resolved]
  - Obstructive airways disorder [Recovered/Resolved]
  - Bradycardia [Recovered/Resolved]
  - Thrombosis [Recovered/Resolved]
